FAERS Safety Report 14263287 (Version 4)
Quarter: 2018Q2

REPORT INFORMATION
  Report Type: Spontaneous
  Country: PT (occurrence: PT)
  Receive Date: 20171208
  Receipt Date: 20180413
  Transmission Date: 20180711
  Serious: Yes (Other)
  Sender: FDA-Public Use
  Company Number: PT-009507513-1711PRT012559

PATIENT
  Age: 6 Year
  Sex: Male

DRUGS (1)
  1. DIPROGENTA [Suspect]
     Active Substance: BETAMETHASONE DIPROPIONATE\GENTAMICIN SULFATE
     Indication: PRODUCT USED FOR UNKNOWN INDICATION
     Dosage: 1 DF, QD
     Route: 061
     Dates: start: 201711, end: 201711

REACTIONS (3)
  - Rash [Unknown]
  - Adverse reaction [Unknown]
  - Hypersensitivity [Unknown]

NARRATIVE: CASE EVENT DATE: 201711
